FAERS Safety Report 5310212-0 (Version None)
Quarter: 2007Q2

REPORT INFORMATION
  Report Type: 
  Country: None (occurrence: None)
  Receive Date: 20070427
  Receipt Date: 20070416
  Transmission Date: 20071010
  Serious: Yes (Death, Life-Threatening, Hospitalization, Disabling)
  Sender: FDA-Public Use
  Company Number: SE-ROCHE-371668

PATIENT
  Age: 67 Year
  Sex: Male

DRUGS (34)
  1. MYCOPHENOLATE MOFETIL [Suspect]
     Indication: LIVER TRANSPLANT REJECTION
     Route: 065
     Dates: start: 20040702, end: 20040710
  2. TACROLIMUS [Suspect]
     Dosage: ADJUSTED TO REACH PREDEFINED TARGET LEVELS.
     Route: 048
     Dates: start: 20040602, end: 20040608
  3. TACROLIMUS [Suspect]
     Route: 048
     Dates: start: 20040609, end: 20040609
  4. TACROLIMUS [Suspect]
     Route: 048
     Dates: start: 20040610, end: 20040616
  5. TACROLIMUS [Suspect]
     Route: 048
     Dates: start: 20040617, end: 20040618
  6. TACROLIMUS [Suspect]
     Dosage: TREATMENT OF REJECTION.
     Route: 048
     Dates: start: 20040619, end: 20040619
  7. TACROLIMUS [Suspect]
     Route: 048
     Dates: start: 20040620
  8. METHYLPREDNISOLONE 16MG TAB [Suspect]
     Route: 065
     Dates: start: 20040601, end: 20040602
  9. METHYLPREDNISOLONE 16MG TAB [Suspect]
     Dosage: TREATMENT OF REJECTION
     Route: 065
     Dates: start: 20040620, end: 20040620
  10. PREDNISOLONE [Suspect]
     Dosage: TAPER ACCORDING TO LOCAL PROTOCOL.
     Route: 065
     Dates: start: 20040602, end: 20040602
  11. PREDNISOLONE [Suspect]
     Route: 065
     Dates: start: 20040603, end: 20040603
  12. PREDNISOLONE [Suspect]
     Route: 065
     Dates: start: 20040604, end: 20040604
  13. PREDNISOLONE [Suspect]
     Route: 065
     Dates: start: 20040605, end: 20040605
  14. PREDNISOLONE [Suspect]
     Route: 065
     Dates: start: 20040606, end: 20040606
  15. PREDNISOLONE [Suspect]
     Route: 065
     Dates: start: 20040607, end: 20040620
  16. PREDNISOLONE [Suspect]
     Dosage: TREATMENT OF REJECTION.
     Route: 065
     Dates: start: 20040621, end: 20040621
  17. PREDNISOLONE [Suspect]
     Dosage: TREATMENT OF REJECTION
     Route: 065
     Dates: start: 20040622
  18. ORTHOCLONE OKT3 [Suspect]
     Route: 065
     Dates: start: 20040727
  19. ACETYLSALICYLIC ACID SRT [Suspect]
     Indication: THROMBOSIS PROPHYLAXIS
     Route: 065
     Dates: start: 20040609, end: 20040619
  20. KETOBEMIDON [Concomitant]
     Dates: start: 20040601, end: 20040601
  21. ONDANSETRON [Concomitant]
     Dates: start: 20040602, end: 20040602
  22. MORFIN [Concomitant]
     Dates: start: 20040602, end: 20040603
  23. DIXYRAZIN [Concomitant]
     Indication: NAUSEA
     Dates: start: 20040602
  24. DEXTRAN INJ [Concomitant]
     Indication: THROMBOSIS PROPHYLAXIS
     Dates: start: 20040603, end: 20040604
  25. ALBUMIN (HUMAN) [Concomitant]
     Dosage: INDICATION: VOLUME COMPENSATION.
     Dates: start: 20040605, end: 20040605
  26. DALTEPARIN SODIUM [Concomitant]
     Indication: THROMBOSIS PROPHYLAXIS
     Dates: start: 20040606, end: 20040607
  27. AMPICILLIN [Concomitant]
     Indication: INFECTION PROPHYLAXIS
     Dates: start: 20040601, end: 20040605
  28. CEFOTAXIM [Concomitant]
     Indication: INFECTION PROPHYLAXIS
     Dates: start: 20040601, end: 20040605
  29. NYSTATIN [Concomitant]
     Indication: INFECTION PROPHYLAXIS
     Dates: start: 20040603
  30. OMEPRAZOLE [Concomitant]
     Dates: start: 20040602
  31. PARACETAMOL [Concomitant]
     Dates: start: 20040605
  32. DEXTROPROPOXIFEN [Concomitant]
     Dates: start: 20040605
  33. TRIMETHOPRIM [Concomitant]
     Dates: start: 20040614
  34. CLONAZEPAM [Concomitant]
     Indication: INSOMNIA
     Dates: start: 20040614

REACTIONS (8)
  - ACUTE RESPIRATORY DISTRESS SYNDROME [None]
  - ARRHYTHMIA [None]
  - CARDIOGENIC SHOCK [None]
  - GASTROINTESTINAL HAEMORRHAGE [None]
  - HEPATIC FUNCTION ABNORMAL [None]
  - LOSS OF CONSCIOUSNESS [None]
  - MYOCARDIAL INFARCTION [None]
  - RENAL IMPAIRMENT [None]
